FAERS Safety Report 20090870 (Version 1)
Quarter: 2021Q4

REPORT INFORMATION
  Report Type: Spontaneous
  Country: CA (occurrence: CA)
  Receive Date: 20211119
  Receipt Date: 20211119
  Transmission Date: 20220303
  Serious: Yes (Other)
  Sender: FDA-Public Use
  Company Number: CA-PFIZER INC-202101557262

PATIENT
  Age: 55 Year
  Sex: Male

DRUGS (3)
  1. METHOTREXATE SODIUM [Suspect]
     Active Substance: METHOTREXATE SODIUM
     Indication: Crohn^s disease
     Dosage: 1 DF
     Route: 048
     Dates: start: 2016, end: 2017
  2. METHOTREXATE SODIUM [Suspect]
     Active Substance: METHOTREXATE SODIUM
     Dosage: 1DF
     Route: 065
  3. ENTYVIO [Concomitant]
     Active Substance: VEDOLIZUMAB
     Indication: Crohn^s disease
     Dosage: 300 MG,EVERY 8 WEEK
     Route: 042
     Dates: start: 202107, end: 2021

REACTIONS (14)
  - Pericarditis [Unknown]
  - Terminal ileitis [Unknown]
  - Fall [Unknown]
  - Musculoskeletal chest pain [Unknown]
  - Abdominal pain [Unknown]
  - Gastrointestinal wall thickening [Unknown]
  - Drug intolerance [Unknown]
  - Influenza like illness [Unknown]
  - Bowel movement irregularity [Unknown]
  - Aphthous ulcer [Unknown]
  - Drug ineffective [Unknown]
  - Anaemia [Unknown]
  - Headache [Recovered/Resolved]
  - Nausea [Recovered/Resolved]

NARRATIVE: CASE EVENT DATE: 20170101
